FAERS Safety Report 6935176-5 (Version None)
Quarter: 2010Q3

REPORT INFORMATION
  Report Type: 
  Country: None (occurrence: None)
  Receive Date: 20100822
  Receipt Date: 20100817
  Transmission Date: 20110219
  Serious: Yes (Death, Other)
  Sender: FDA-Public Use
  Company Number: PHHY2010US46100

PATIENT
  Sex: Female

DRUGS (1)
  1. RECLAST [Suspect]
     Indication: OSTEOPOROSIS
     Dosage: 5MG ONCE YEARLY
     Route: 042

REACTIONS (3)
  - CLOSTRIDIUM DIFFICILE COLITIS [None]
  - MEGACOLON [None]
  - URINARY TRACT INFECTION [None]
